FAERS Safety Report 6783449-1 (Version None)
Quarter: 2010Q2

REPORT INFORMATION
  Report Type: 
  Country: None (occurrence: None)
  Receive Date: 20100622
  Receipt Date: 20100617
  Transmission Date: 20101027
  Serious: Yes (Life-Threatening, Hospitalization)
  Sender: FDA-Public Use
  Company Number: FR-BRISTOL-MYERS SQUIBB COMPANY-15063092

PATIENT
  Age: 73 Year
  Sex: Male

DRUGS (9)
  1. AZACTAM [Suspect]
     Indication: URINARY TRACT INFECTION PSEUDOMONAL
     Route: 051
     Dates: start: 20100216, end: 20100315
  2. ALDACTONE [Suspect]
     Dosage: FILM COATED TABLETS
     Route: 048
     Dates: start: 20100308, end: 20100317
  3. PYOSTACINE [Suspect]
     Dates: start: 20100305
  4. COLIMYCINE [Suspect]
     Indication: URINARY TRACT INFECTION PSEUDOMONAL
     Dates: start: 20100216
  5. ESOMEPRAZOLE [Concomitant]
  6. APROVEL [Concomitant]
  7. KREDEX [Concomitant]
  8. VANCOMYCIN [Concomitant]
     Dates: end: 20100101
  9. AMINOGLYCOSIDES [Concomitant]
     Dates: end: 20100101

REACTIONS (2)
  - AGRANULOCYTOSIS [None]
  - PYREXIA [None]
